FAERS Safety Report 7462728-9 (Version None)
Quarter: 2011Q2

REPORT INFORMATION
  Report Type: 
  Country: None (occurrence: None)
  Receive Date: 20110506
  Receipt Date: 20110321
  Transmission Date: 20111010
  Serious: Yes (Hospitalization, Other)
  Sender: FDA-Public Use
  Company Number: US-BAYER-201019417NA

PATIENT
  Age: 22 Year
  Sex: Female
  Weight: 82.993 kg

DRUGS (9)
  1. MIDRIN [Concomitant]
     Indication: CONTRACEPTION
  2. PREVACID [Concomitant]
  3. NEXIUM [Concomitant]
     Indication: HEADACHE
     Dosage: UNK UNK, PRN
  4. YASMIN [Suspect]
  5. YAZ [Concomitant]
  6. TRINESSA [Concomitant]
  7. ZOLOFT [Concomitant]
     Dosage: 50 MG, UNK
  8. FROVA [Concomitant]
  9. YASMIN [Suspect]
     Indication: ORAL CONTRACEPTION
     Route: 048
     Dates: start: 20090801

REACTIONS (4)
  - BILIARY COLIC [None]
  - GALLBLADDER DISORDER [None]
  - CHOLELITHIASIS [None]
  - GALLBLADDER INJURY [None]
